FAERS Safety Report 15515957 (Version 2)
Quarter: 2019Q1

REPORT INFORMATION
  Report Type: Spontaneous
  Country: US (occurrence: US)
  Receive Date: 20181017
  Receipt Date: 20190320
  Transmission Date: 20190417
  Serious: No
  Sender: FDA-Public Use
  Company Number: US-PFIZER INC-2018411758

PATIENT
  Age: 62 Year
  Sex: Male
  Weight: 84.81 kg

DRUGS (1)
  1. GABAPENTIN. [Suspect]
     Active Substance: GABAPENTIN
     Indication: NERVE INJURY
     Dosage: 800 MG, 4X/DAY
     Route: 048
     Dates: end: 201806

REACTIONS (2)
  - Drug ineffective for unapproved indication [Recovered/Resolved]
  - Somnolence [Unknown]
